FAERS Safety Report 4591584-1 (Version None)
Quarter: 2005Q1

REPORT INFORMATION
  Report Type: 
  Country: None (occurrence: None)
  Receive Date: 20050223
  Receipt Date: 20050217
  Transmission Date: 20050727
  Serious: Yes (Death)
  Sender: FDA-Public Use
  Company Number: 05-01-0091

PATIENT
  Age: 41 Year
  Sex: Male
  Weight: 175.9956 kg

DRUGS (7)
  1. CLOZAPINE [Suspect]
     Indication: SCHIZOPHRENIA, PARANOID TYPE
     Dosage: 400 MG QHS ORAL
     Route: 048
     Dates: start: 20010101, end: 20050101
  2. RISPERDAL [Concomitant]
  3. ZOLOFT [Concomitant]
  4. TOPAMAX [Concomitant]
  5. ENALAPRIL MALEATE [Concomitant]
  6. LIPITOR [Concomitant]
  7. LASIX [Concomitant]

REACTIONS (2)
  - FALL [None]
  - MYOCARDIAL INFARCTION [None]
